FAERS Safety Report 7091630-X (Version None)
Quarter: 2010Q4

REPORT INFORMATION
  Report Type: 
  Country: None (occurrence: None)
  Receive Date: 20101109
  Receipt Date: 20081030
  Transmission Date: 20110411
  Serious: No
  Sender: FDA-Public Use
  Company Number: US-KINGPHARMUSA00001-K200801258

PATIENT
  Sex: Female
  Weight: 140.59 kg

DRUGS (1)
  1. EPIPEN [Suspect]
     Indication: HYPERSENSITIVITY
     Dosage: UNK, SINGLE
     Route: 030
     Dates: start: 20081030, end: 20081030

REACTIONS (2)
  - INJECTION SITE ANAESTHESIA [None]
  - INJECTION SITE PAIN [None]
